FAERS Safety Report 24815404 (Version 2)
Quarter: 2025Q1

REPORT INFORMATION
  Report Type: Spontaneous
  Country: US (occurrence: US)
  Receive Date: 20250107
  Receipt Date: 20250131
  Transmission Date: 20250409
  Serious: Yes (Other)
  Sender: JOHNSON AND JOHNSON
  Company Number: US-JNJFOC-20241235490

PATIENT

DRUGS (1)
  1. RYBREVANT [Suspect]
     Active Substance: AMIVANTAMAB-VMJW
     Indication: Product used for unknown indication
     Route: 065
     Dates: start: 202407

REACTIONS (20)
  - Neuropathy peripheral [Unknown]
  - Pulmonary embolism [Unknown]
  - Dry mouth [Unknown]
  - Nasal dryness [Unknown]
  - Dry throat [Unknown]
  - Peripheral swelling [Unknown]
  - Dysphonia [Unknown]
  - Infusion related reaction [Unknown]
  - Rash [Unknown]
  - Acne [Unknown]
  - Pruritus [Unknown]
  - Dry skin [Unknown]
  - Paronychia [Unknown]
  - Dry eye [Unknown]
  - Rhinorrhoea [Unknown]
  - Asthenia [Unknown]
  - Lip disorder [Unknown]
  - Dyspnoea [Unknown]
  - Hair growth abnormal [Unknown]
  - Ulcer [Unknown]
